FAERS Safety Report 9276537 (Version 1)
Quarter: 2012Q4

REPORT INFORMATION
  Report Type: Spontaneous
  Country: IT (occurrence: None)
  Receive Date: 20121109
  Receipt Date: 20121109
  Transmission Date: 20130627
  Serious: Yes (Other)
  Sender: FDA-Public Use
  Company Number: 2012S1000280

PATIENT
  Age: 64 Year
  Sex: Female

DRUGS (2)
  1. CUBICIN [Suspect]
     Indication: ENDOCARDITIS STAPHYLOCOCCAL
     Dosage: 600 MG ; UNK ; U
     Dates: start: 20120225, end: 20120309
  2. RIFAMPICIN [Concomitant]

REACTIONS (3)
  - Dyspnoea [None]
  - Bronchospasm [None]
  - Disease recurrence [None]
